FAERS Safety Report 6831002-3 (Version None)
Quarter: 2010Q3

REPORT INFORMATION
  Report Type: 
  Country: None (occurrence: None)
  Receive Date: 20100706
  Receipt Date: 20100621
  Transmission Date: 20110219
  Serious: Yes (Death, Life-Threatening, Hospitalization, Other)
  Sender: FDA-Public Use
  Company Number: 2009AC000290

PATIENT
  Age: 46 Year
  Sex: Male

DRUGS (38)
  1. DIGOXIN [Suspect]
     Dosage: 0.125 MG; QD; PO
     Route: 048
     Dates: start: 20010801
  2. DIGOXIN [Suspect]
     Dosage: 0.25 MG; TID; IV
     Route: 042
     Dates: start: 20010625, end: 20010625
  3. DIGOXIN [Suspect]
     Dosage: 0.5 MG; ; IV
     Route: 042
     Dates: start: 20021124, end: 20021124
  4. DIGOXIN [Suspect]
     Dosage: 0.25 MG; QD; PO
     Route: 048
     Dates: start: 19990101, end: 20060308
  5. DIGOXIN [Suspect]
     Dosage: 0.125 MG; QD; PO
     Route: 048
     Dates: start: 20060309, end: 20060506
  6. DIGOXIN [Suspect]
     Dosage: 0.5 MG; IV
     Route: 042
     Dates: start: 20060221, end: 20060221
  7. ACETAMINOPHEN AND HYDROCODONE BITARTRATE [Concomitant]
  8. WARFARIN SODIUM [Concomitant]
  9. FUROSEMIDE [Concomitant]
  10. CIPRO [Concomitant]
  11. BUSPAR [Concomitant]
  12. CADUET [Concomitant]
  13. INSULIN [Concomitant]
  14. COUMADIN [Concomitant]
  15. POTASSIUM CHLORIDE [Concomitant]
  16. VICODIN [Concomitant]
  17. CLONIDINE [Concomitant]
  18. FUROSEMIDE [Concomitant]
  19. WARFARIN SODIUM [Concomitant]
  20. VICODIN [Concomitant]
  21. POTASSIUM CHLORIDE [Concomitant]
  22. INSULIN [Concomitant]
  23. BUSPIRONE [Concomitant]
  24. METHADOSE [Concomitant]
  25. HYDRALAZINE HCL [Concomitant]
  26. OXYGEN [Concomitant]
  27. AMIODARONE HCL [Concomitant]
  28. CARDIZEM [Concomitant]
  29. DOBUTREX [Concomitant]
  30. CARDURA [Concomitant]
  31. DOPAMINE HCL [Concomitant]
  32. LOPRESSOR [Concomitant]
  33. GLUCOTROL [Concomitant]
  34. TOPROL-XL [Concomitant]
  35. COREG [Concomitant]
  36. NICOTINE [Concomitant]
  37. VASOTEC [Concomitant]
  38. DILAUDID [Concomitant]

REACTIONS (44)
  - ALCOHOL WITHDRAWAL SYNDROME [None]
  - ANKYLOSING SPONDYLITIS [None]
  - ARRHYTHMIA [None]
  - ASBESTOSIS [None]
  - ASCITES [None]
  - ATRIAL FIBRILLATION [None]
  - ATRIAL FLUTTER [None]
  - BACK PAIN [None]
  - BUNDLE BRANCH BLOCK LEFT [None]
  - BUNDLE BRANCH BLOCK RIGHT [None]
  - CARDIAC FAILURE CONGESTIVE [None]
  - CARDIO-RESPIRATORY ARREST [None]
  - CARDIOMYOPATHY [None]
  - CEREBROVASCULAR ACCIDENT [None]
  - CHOLELITHIASIS [None]
  - CHRONIC OBSTRUCTIVE PULMONARY DISEASE [None]
  - COAGULOPATHY [None]
  - CORONARY ARTERY DISEASE [None]
  - DIABETES MELLITUS INADEQUATE CONTROL [None]
  - DIZZINESS [None]
  - DYSPNOEA [None]
  - ECONOMIC PROBLEM [None]
  - EJECTION FRACTION DECREASED [None]
  - ELECTROCARDIOGRAM T WAVE ABNORMAL [None]
  - FALL [None]
  - HYPERCHOLESTEROLAEMIA [None]
  - HYPERLIPIDAEMIA [None]
  - HYPERTENSION [None]
  - LEFT ATRIAL DILATATION [None]
  - LEFT VENTRICULAR HYPERTROPHY [None]
  - LOSS OF CONSCIOUSNESS [None]
  - MITRAL VALVE INCOMPETENCE [None]
  - MULTIPLE INJURIES [None]
  - MYOCARDIAL INFARCTION [None]
  - OEDEMA PERIPHERAL [None]
  - PAIN [None]
  - PLEURAL EFFUSION [None]
  - PNEUMONIA [None]
  - PULMONARY EMBOLISM [None]
  - RESPIRATORY FAILURE [None]
  - SLEEP APNOEA SYNDROME [None]
  - SURGERY [None]
  - UMBILICAL HERNIA, OBSTRUCTIVE [None]
  - VENTRICULAR FIBRILLATION [None]
